FAERS Safety Report 11647897 (Version 1)
Quarter: 2015Q4

REPORT INFORMATION
  Report Type: Spontaneous
  Country: GB (occurrence: GB)
  Receive Date: 20151021
  Receipt Date: 20151021
  Transmission Date: 20160304
  Serious: Yes (Other)
  Sender: FDA-Public Use
  Company Number: GB-ACTAVIS-2015-10955

PATIENT
  Age: 19 Year
  Sex: Female
  Weight: 48 kg

DRUGS (1)
  1. HYDROCORTISONE (UNKNOWN) [Suspect]
     Active Substance: HYDROCORTISONE
     Indication: ECZEMA EYELIDS
     Dosage: UNK
     Route: 061
     Dates: start: 20141130, end: 20150403

REACTIONS (2)
  - Skin atrophy [Unknown]
  - Skin discolouration [Not Recovered/Not Resolved]
